FAERS Safety Report 8810467 (Version 2)
Quarter: 2012Q4

REPORT INFORMATION
  Report Type: 
  Country: US (occurrence: US)
  Receive Date: 20120927
  Receipt Date: 20121203
  Transmission Date: 20130627
  Serious: Yes (Hospitalization, Other)
  Sender: FDA-Public Use
  Company Number: US-BIOGENIDEC-2012BI039977

PATIENT
  Sex: Female

DRUGS (1)
  1. TYSABRI [Suspect]
     Indication: MULTIPLE SCLEROSIS
     Route: 042
     Dates: start: 20080312

REACTIONS (6)
  - Partial seizures with secondary generalisation [Recovered/Resolved]
  - Epilepsy [Recovered/Resolved]
  - Grand mal convulsion [Recovered/Resolved]
  - Mechanical ventilation [Recovered/Resolved]
  - Hemiparesis [Not Recovered/Not Resolved]
  - Central nervous system lesion [Not Recovered/Not Resolved]
